FAERS Safety Report 19431738 (Version 1)
Quarter: 2021Q2

REPORT INFORMATION
  Report Type: Spontaneous
  Country: US (occurrence: US)
  Receive Date: 20210618
  Receipt Date: 20210618
  Transmission Date: 20210717
  Serious: No
  Sender: FDA-Public Use
  Company Number: US-SA-2021SA198309

PATIENT
  Sex: Female

DRUGS (18)
  1. MIRTAZAPINE. [Concomitant]
     Active Substance: MIRTAZAPINE
  2. LOSARTAN POTASSIUM. [Concomitant]
     Active Substance: LOSARTAN POTASSIUM
  3. MULTIVITAMINS [VITAMINS NOS] [Concomitant]
     Active Substance: VITAMINS
  4. BENADRYL [Concomitant]
     Active Substance: DIPHENHYDRAMINE HYDROCHLORIDE
  5. AUBAGIO [Suspect]
     Active Substance: TERIFLUNOMIDE
     Indication: MULTIPLE SCLEROSIS
     Route: 048
     Dates: start: 20160928
  6. TUMS [Concomitant]
     Active Substance: CALCIUM CARBONATE
     Dosage: 300MG
  7. VITAMIN D [VITAMIN D NOS] [Concomitant]
     Active Substance: VITAMIN D NOS
     Dosage: 325MG
  8. NAMENDA [Concomitant]
     Active Substance: MEMANTINE HYDROCHLORIDE
  9. VITAMIN C [Concomitant]
     Active Substance: ASCORBIC ACID
     Dosage: 80MG
  10. VITAMIN D3 [Concomitant]
     Active Substance: CHOLECALCIFEROL
     Dosage: 1000MG
  11. UREA. [Concomitant]
     Active Substance: UREA
  12. WARFARIN SODIUM. [Concomitant]
     Active Substance: WARFARIN SODIUM
  13. FERROUS SULFATE. [Concomitant]
     Active Substance: FERROUS SULFATE
  14. TYLENOL [Concomitant]
     Active Substance: ACETAMINOPHEN
     Dosage: 25MG
  15. EMEND [Concomitant]
     Active Substance: APREPITANT
  16. VITAMIN B COMPLEX [Concomitant]
     Active Substance: CYANOCOBALAMIN\DEXPANTHENOL\NIACINAMIDE\PYRIDOXINE HYDROCHLORIDE\RIBOFLAVIN 5^-PHOSPHATE SODIUM\THIAMINE HYDROCHLORIDE\VITAMIN B COMPLEX
     Dosage: 1000MG
  17. CARVEDILOL. [Concomitant]
     Active Substance: CARVEDILOL
  18. ESTRACE [Concomitant]
     Active Substance: ESTRADIOL

REACTIONS (1)
  - Breast disorder female [Unknown]
